FAERS Safety Report 8948482 (Version 1)
Quarter: 2012Q4

REPORT INFORMATION
  Report Type: Spontaneous
  Country: GB (occurrence: None)
  Receive Date: 20121123
  Receipt Date: 20121123
  Transmission Date: 20130627
  Serious: Yes (Life-Threatening, Hospitalization)
  Sender: FDA-Public Use
  Company Number: AUR-APL-2012-04897

PATIENT
  Age: 78 Year
  Sex: Male
  Weight: 85 kg

DRUGS (10)
  1. NAPROXEN (NAPROXEN) [Suspect]
     Indication: DRUG USE FOR UNKNOWN INDICATION
     Dosage: (250 mg, 3 in 1 D)
     Route: 048
     Dates: end: 20121029
  2. ASPIRIN [Suspect]
     Dosage: (75 mg, 1 in 1 D)
     Route: 048
     Dates: end: 20121029
  3. DEXAMETHASONE [Suspect]
     Route: 048
  4. FUROSEMIDE (FUROSEMIDE) [Concomitant]
  5. LANSOPRAZOLE (LANSOPRAZOLE) [Concomitant]
  6. PARACETAMOL (PARACETAMOL) [Concomitant]
  7. SALBUTAMOL (SALBUTAMOL) [Concomitant]
  8. SERETIDE (SERETIDE /01420901/) [Concomitant]
  9. SIMVASTATIN (SIMVASTATIN) [Concomitant]
  10. TIOTROPIUM BROMIDE (TIOTROPIUM BROMIDE) [Concomitant]

REACTIONS (1)
  - Oesophageal haemorrhage [None]
